FAERS Safety Report 8361700-4 (Version None)
Quarter: 2012Q2

REPORT INFORMATION
  Report Type: 
  Country: None (occurrence: None)
  Receive Date: 20120514
  Receipt Date: 20120427
  Transmission Date: 20120825
  Serious: Yes (Hospitalization, Other)
  Sender: FDA-Public Use
  Company Number: 2012P1018467

PATIENT
  Age: 67 Year
  Sex: Female
  Weight: 88.905 kg

DRUGS (9)
  1. ENOXAPARIN [Suspect]
     Indication: DEEP VEIN THROMBOSIS
     Dosage: 100 MG;BID;SC
     Route: 058
     Dates: start: 20120319, end: 20120323
  2. CEPHALEXIN [Concomitant]
  3. CORTEF [Concomitant]
  4. SYNTHROID [Concomitant]
  5. WARFARIN SODIUM [Suspect]
     Dosage: 5 MG;X1 2.5 MG;QD 5 MG;X1
     Dates: start: 20120323, end: 20120324
  6. WARFARIN SODIUM [Suspect]
     Dosage: 5 MG;X1 2.5 MG;QD 5 MG;X1
     Dates: start: 20120320, end: 20120320
  7. WARFARIN SODIUM [Suspect]
     Dosage: 5 MG;X1 2.5 MG;QD 5 MG;X1
     Dates: start: 20120321, end: 20120322
  8. FLUDROCORTISONE ACETATE [Concomitant]
  9. ASPIRIN [Concomitant]

REACTIONS (1)
  - INJECTION SITE HAEMATOMA [None]
